FAERS Safety Report 8327856-4 (Version None)
Quarter: 2012Q2

REPORT INFORMATION
  Report Type: 
  Country: None (occurrence: None)
  Receive Date: 20120502
  Receipt Date: 20120427
  Transmission Date: 20120825
  Serious: Yes (Life-Threatening)
  Sender: FDA-Public Use
  Company Number: GR-MPIJNJ-2012-03016

PATIENT

DRUGS (5)
  1. RITUXIMAB [Concomitant]
     Dosage: 700 MG, UNK
  2. VELCADE [Suspect]
     Dosage: 1.6 MG/M2, UNK
     Route: 042
     Dates: start: 20120421
  3. LAMIVUDINE [Concomitant]
     Indication: HEPATITIS B
  4. DEXAMETHASONE [Concomitant]
     Dosage: 24 MG, QD
  5. BARACLUDE [Concomitant]
     Indication: HEPATITIS B

REACTIONS (3)
  - RESPIRATORY ARREST [None]
  - OFF LABEL USE [None]
  - PULMONARY HAEMORRHAGE [None]
